FAERS Safety Report 8558134-6 (Version None)
Quarter: 2012Q3

REPORT INFORMATION
  Report Type: 
  Country: None (occurrence: None)
  Receive Date: 20120727
  Receipt Date: 20120727
  Transmission Date: 20120928
  Serious: No
  Sender: FDA-Public Use
  Company Number: None

PATIENT
  Age: 17 Year
  Sex: Female
  Weight: 65.8 kg

DRUGS (1)
  1. TUBERSOL [Suspect]
     Indication: MYCOBACTERIUM TUBERCULOSIS COMPLEX TEST
     Dosage: SQ
     Route: 058
     Dates: start: 20120724, end: 20120724

REACTIONS (3)
  - SENSATION OF HEAVINESS [None]
  - SYNCOPE [None]
  - HYPOAESTHESIA [None]
